FAERS Safety Report 11227197 (Version 1)
Quarter: 2015Q2

REPORT INFORMATION
  Report Type: Report from Study
  Country: US (occurrence: US)
  Receive Date: 20150630
  Receipt Date: 20150630
  Transmission Date: 20150821
  Serious: Yes (Other)
  Sender: FDA-Public Use
  Company Number: PHEH2015US011851

PATIENT
  Age: 49 Year
  Sex: Female
  Weight: 64.4 kg

DRUGS (9)
  1. VITAMIN B12 [Concomitant]
     Active Substance: CYANOCOBALAMIN
     Indication: PRODUCT USED FOR UNKNOWN INDICATION
     Route: 065
  2. GABAPENTIN. [Suspect]
     Active Substance: GABAPENTIN
     Indication: PAIN IN EXTREMITY
     Route: 065
  3. GILENYA [Suspect]
     Active Substance: FINGOLIMOD HYDROCHLORIDE
     Indication: MULTIPLE SCLEROSIS
     Dosage: 0.5 MG, QD
     Route: 048
  4. ALPROZOLAM [Concomitant]
     Active Substance: ALPRAZOLAM
     Indication: PRODUCT USED FOR UNKNOWN INDICATION
     Route: 065
  5. VITAMIN D2 [Concomitant]
     Active Substance: ERGOCALCIFEROL
     Indication: PRODUCT USED FOR UNKNOWN INDICATION
     Route: 065
  6. TRAZODONE [Concomitant]
     Active Substance: TRAZODONE HYDROCHLORIDE
     Indication: PRODUCT USED FOR UNKNOWN INDICATION
     Route: 065
  7. HYDROCODONE BITARTRATE AND ACETAMINOPHEN [Concomitant]
     Active Substance: ACETAMINOPHEN\HYDROCODONE BITARTRATE
     Indication: PRODUCT USED FOR UNKNOWN INDICATION
     Route: 065
  8. DILANTIN [Concomitant]
     Active Substance: PHENYTOIN
     Indication: PRODUCT USED FOR UNKNOWN INDICATION
     Route: 065
  9. IRON [Concomitant]
     Active Substance: IRON
     Indication: PRODUCT USED FOR UNKNOWN INDICATION
     Route: 065

REACTIONS (24)
  - Stress [Unknown]
  - Optic atrophy [Unknown]
  - Vitamin D deficiency [Unknown]
  - Insomnia [Unknown]
  - Neuralgia [Recovering/Resolving]
  - Memory impairment [Unknown]
  - Anxiety disorder due to a general medical condition [Unknown]
  - Pain in extremity [Unknown]
  - Dizziness [Recovering/Resolving]
  - Anxiety [Unknown]
  - Ataxia [Unknown]
  - Decreased activity [Unknown]
  - Depression [Unknown]
  - Central nervous system lesion [Unknown]
  - Gastrointestinal hypermotility [Unknown]
  - Aphasia [Unknown]
  - Confusional state [Unknown]
  - Diarrhoea [Unknown]
  - Fatigue [Unknown]
  - Fall [Unknown]
  - Intervertebral disc degeneration [Unknown]
  - Lymphoedema [Unknown]
  - Neurogenic bowel [Unknown]
  - Multiple sclerosis relapse [Recovering/Resolving]

NARRATIVE: CASE EVENT DATE: 201310
